FAERS Safety Report 5675448-8 (Version None)
Quarter: 2008Q2

REPORT INFORMATION
  Report Type: 
  Country: None (occurrence: None)
  Receive Date: 20080311
  Receipt Date: 20070713
  Transmission Date: 20081010
  Serious: Yes (Hospitalization, Other)
  Sender: FDA-Public Use
  Company Number: PHEH2007US05714

PATIENT
  Age: 43 Year

DRUGS (7)
  1. TRILEPTAL(OXCARBAZINE) TABLET [Suspect]
     Indication: GRAND MAL CONVULSION
     Dosage: 1200 MG, QD, ORAL; 1500 MG, QD, ORAL
     Route: 048
     Dates: start: 20070109, end: 20070101
  2. TRILEPTAL(OXCARBAZINE) TABLET [Suspect]
     Indication: GRAND MAL CONVULSION
     Dosage: 1200 MG, QD, ORAL; 1500 MG, QD, ORAL
     Route: 048
     Dates: start: 20020101, end: 20070108
  3. PROPANOLOL (PROPANOLOL) [Concomitant]
  4. IMITREX [Concomitant]
  5. ATIVAN [Concomitant]
  6. ACETAMINOPHEN [Concomitant]
  7. FLEXERIL [Concomitant]

REACTIONS (6)
  - BLOOD SODIUM DECREASED [None]
  - DYSPNOEA [None]
  - GRAND MAL CONVULSION [None]
  - HEART RATE INCREASED [None]
  - HYPERTENSION [None]
  - PALPITATIONS [None]
